FAERS Safety Report 8955058 (Version 1)
Quarter: 2012Q4

REPORT INFORMATION
  Report Type: Spontaneous
  Country: RO (occurrence: None)
  Receive Date: 20121130
  Receipt Date: 20121130
  Transmission Date: 20130627
  Serious: Yes (Hospitalization)
  Sender: FDA-Public Use
  Company Number: 2012-20725

PATIENT
  Age: 57 Year
  Sex: Female

DRUGS (4)
  1. METFORMIN HYDROCHLORIDE [Suspect]
     Indication: DRUG USE FOR UNKNOWN INDICATION
  2. METOPROLOL (METOPROLOL) [Concomitant]
  3. ENALAPRIL (ENALAPRIL) [Concomitant]
  4. SIMVASTATIN (SIMVASTATIN) [Concomitant]

REACTIONS (6)
  - Hepatitis cholestatic [None]
  - Hepatic steatosis [None]
  - Diarrhoea [None]
  - Abdominal distension [None]
  - Nausea [None]
  - Asthenia [None]
